FAERS Safety Report 12592271 (Version 7)
Quarter: 2016Q3

REPORT INFORMATION
  Report Type: Report from Study
  Country: IT (occurrence: IT)
  Receive Date: 20160726
  Receipt Date: 20160906
  Transmission Date: 20161109
  Serious: Yes (Hospitalization)
  Sender: FDA-Public Use
  Company Number: IT-ROCHE-1793468

PATIENT
  Age: 61 Year
  Sex: Female
  Weight: 60 kg

DRUGS (75)
  1. DEXAMETHASONE. [Concomitant]
     Active Substance: DEXAMETHASONE
     Route: 065
     Dates: start: 20160516, end: 20160516
  2. DEXAMETHASONE. [Concomitant]
     Active Substance: DEXAMETHASONE
     Route: 065
     Dates: start: 20151021, end: 20151021
  3. RANITIDINE. [Concomitant]
     Active Substance: RANITIDINE
     Route: 065
     Dates: start: 20160107, end: 20160107
  4. TRIMETON (ITALY) [Concomitant]
     Route: 065
     Dates: start: 20151104, end: 20151104
  5. TRIMETON (ITALY) [Concomitant]
     Route: 065
     Dates: start: 20160205, end: 20160205
  6. TRIMETON (ITALY) [Concomitant]
     Route: 065
     Dates: start: 20160107, end: 20160107
  7. TRIMETON (ITALY) [Concomitant]
     Route: 065
     Dates: start: 20151118, end: 20151118
  8. TRIMETON (ITALY) [Concomitant]
     Route: 065
     Dates: start: 20150921, end: 20150921
  9. ZOFRAN [Concomitant]
     Active Substance: ONDANSETRON HYDROCHLORIDE
     Route: 065
     Dates: start: 20151104, end: 20151104
  10. 5-FLUOROURACIL [Suspect]
     Active Substance: FLUOROURACIL
     Indication: COLORECTAL CANCER METASTATIC
     Dosage: DATE OF MOST RECET DOSE ON 29/JUN/2016 AT 15:55
     Route: 042
     Dates: start: 20160107
  11. BASSADO [Concomitant]
     Active Substance: DOXYCYCLINE HYCLATE
     Indication: RASH
     Route: 065
     Dates: start: 20160510, end: 20160516
  12. DEXAMETHASONE. [Concomitant]
     Active Substance: DEXAMETHASONE
     Route: 065
     Dates: start: 20160615, end: 20160615
  13. DEXAMETHASONE. [Concomitant]
     Active Substance: DEXAMETHASONE
     Route: 065
     Dates: start: 20151216, end: 20151216
  14. DEXAMETHASONE. [Concomitant]
     Active Substance: DEXAMETHASONE
     Route: 065
     Dates: start: 20160629, end: 20160629
  15. DEXAMETHASONE. [Concomitant]
     Active Substance: DEXAMETHASONE
     Route: 065
     Dates: start: 20160530, end: 20160530
  16. PLASIL [Concomitant]
     Active Substance: METOCLOPRAMIDE HYDROCHLORIDE
     Indication: NAUSEA
     Route: 065
     Dates: start: 20150921, end: 20150928
  17. RANITIDINE. [Concomitant]
     Active Substance: RANITIDINE
     Route: 065
     Dates: start: 20151202, end: 20151202
  18. RANITIDINE. [Concomitant]
     Active Substance: RANITIDINE
     Route: 065
     Dates: start: 20160205, end: 20160205
  19. TRIMETON (ITALY) [Concomitant]
     Route: 065
     Dates: start: 20160502, end: 20160502
  20. ZOFRAN [Concomitant]
     Active Substance: ONDANSETRON HYDROCHLORIDE
     Route: 065
     Dates: start: 20151021, end: 20151021
  21. RANITIDINE. [Concomitant]
     Active Substance: RANITIDINE
     Route: 065
     Dates: start: 20151216, end: 20151216
  22. RANITIDINE. [Concomitant]
     Active Substance: RANITIDINE
     Route: 065
     Dates: start: 20151118, end: 20151118
  23. RANITIDINE. [Concomitant]
     Active Substance: RANITIDINE
     Route: 065
     Dates: start: 20160219, end: 20160219
  24. RANITIDINE. [Concomitant]
     Active Substance: RANITIDINE
     Route: 065
     Dates: start: 20150921, end: 20150921
  25. TRIMETON (ITALY) [Concomitant]
     Route: 065
     Dates: start: 20151021, end: 20151021
  26. TRIMETON (ITALY) [Concomitant]
     Route: 065
     Dates: start: 20160629, end: 20160629
  27. ZOFRAN [Concomitant]
     Active Substance: ONDANSETRON HYDROCHLORIDE
     Route: 065
     Dates: start: 20150921, end: 20150921
  28. CETUXIMAB [Suspect]
     Active Substance: CETUXIMAB
     Indication: COLORECTAL CANCER METASTATIC
     Dosage: DATE OF MOST RECENT DOSE (805 MG) OF STUDY DRUG PRIOR TO AE ONSET: 29/JUN/2016 AT 12:25
     Route: 042
     Dates: start: 20160108
  29. DEXAMETHASONE. [Concomitant]
     Active Substance: DEXAMETHASONE
     Route: 065
     Dates: start: 20160122, end: 20160122
  30. DEXAMETHASONE. [Concomitant]
     Active Substance: DEXAMETHASONE
     Route: 065
     Dates: start: 20160205, end: 20160205
  31. LANSOPRAZOLE. [Concomitant]
     Active Substance: LANSOPRAZOLE
     Route: 065
     Dates: start: 20150906
  32. RANITIDINE. [Concomitant]
     Active Substance: RANITIDINE
     Route: 065
     Dates: start: 20160502, end: 20160502
  33. RANITIDINE. [Concomitant]
     Active Substance: RANITIDINE
     Route: 065
     Dates: start: 20160516, end: 20160516
  34. RANITIDINE. [Concomitant]
     Active Substance: RANITIDINE
     Route: 065
     Dates: start: 20151021, end: 20151021
  35. RANITIDINE. [Concomitant]
     Active Substance: RANITIDINE
     Route: 065
     Dates: start: 20160122, end: 20160122
  36. TRIMETON (ITALY) [Concomitant]
     Route: 065
     Dates: start: 20160615, end: 20160615
  37. TRIMETON (ITALY) [Concomitant]
     Route: 065
     Dates: start: 20160516, end: 20160516
  38. TRIMETON (ITALY) [Concomitant]
     Route: 065
     Dates: start: 20160219, end: 20160219
  39. CLEXANE [Concomitant]
     Active Substance: ENOXAPARIN SODIUM
     Indication: PULMONARY EMBOLISM
     Route: 065
     Dates: start: 20151222
  40. DEXAMETHASONE. [Concomitant]
     Active Substance: DEXAMETHASONE
     Route: 065
     Dates: start: 20150904, end: 20150904
  41. DEXAMETHASONE. [Concomitant]
     Active Substance: DEXAMETHASONE
     Route: 065
     Dates: start: 20151007, end: 20151007
  42. DEXAMETHASONE. [Concomitant]
     Active Substance: DEXAMETHASONE
     Route: 065
     Dates: start: 20160219, end: 20160219
  43. PLASIL [Concomitant]
     Active Substance: METOCLOPRAMIDE HYDROCHLORIDE
     Route: 065
     Dates: start: 20160516, end: 20160516
  44. PLASIL [Concomitant]
     Active Substance: METOCLOPRAMIDE HYDROCHLORIDE
     Route: 065
     Dates: start: 20160629, end: 20160629
  45. RANITIDINE. [Concomitant]
     Active Substance: RANITIDINE
     Route: 065
     Dates: start: 20151007, end: 20151007
  46. RANITIDINE. [Concomitant]
     Active Substance: RANITIDINE
     Route: 065
     Dates: start: 20160419, end: 20160419
  47. RANITIDINE. [Concomitant]
     Active Substance: RANITIDINE
     Route: 065
     Dates: start: 20160530, end: 20160530
  48. TRIMETON (ITALY) [Concomitant]
     Route: 065
     Dates: start: 20150904, end: 20150904
  49. TRIMETON (ITALY) [Concomitant]
     Route: 065
     Dates: start: 20160122, end: 20160122
  50. ZOFRAN [Concomitant]
     Active Substance: ONDANSETRON HYDROCHLORIDE
     Route: 065
     Dates: start: 20151216, end: 20151216
  51. CLEXANE [Concomitant]
     Active Substance: ENOXAPARIN SODIUM
     Route: 065
     Dates: start: 20160704
  52. DEXAMETHASONE. [Concomitant]
     Active Substance: DEXAMETHASONE
     Route: 065
     Dates: start: 20151202, end: 20151202
  53. DEXAMETHASONE. [Concomitant]
     Active Substance: DEXAMETHASONE
     Route: 065
     Dates: start: 20151104, end: 20151104
  54. DEXAMETHASONE. [Concomitant]
     Active Substance: DEXAMETHASONE
     Route: 065
     Dates: start: 20151118, end: 20151118
  55. PLASIL [Concomitant]
     Active Substance: METOCLOPRAMIDE HYDROCHLORIDE
     Route: 065
     Dates: start: 20160502, end: 20160502
  56. PLASIL [Concomitant]
     Active Substance: METOCLOPRAMIDE HYDROCHLORIDE
     Route: 065
     Dates: start: 20160615, end: 20160615
  57. RANITIDINE. [Concomitant]
     Active Substance: RANITIDINE
     Route: 065
     Dates: start: 20150904, end: 20150904
  58. RANITIDINE. [Concomitant]
     Active Substance: RANITIDINE
     Route: 065
     Dates: start: 20160629, end: 20160629
  59. TRIMETON (ITALY) [Concomitant]
     Route: 065
     Dates: start: 20160419, end: 20160419
  60. ZOFRAN [Concomitant]
     Active Substance: ONDANSETRON HYDROCHLORIDE
     Route: 065
     Dates: start: 20151007, end: 20151007
  61. DEXAMETHASONE. [Concomitant]
     Active Substance: DEXAMETHASONE
     Route: 065
     Dates: start: 20150921, end: 20150921
  62. DEXAMETHASONE. [Concomitant]
     Active Substance: DEXAMETHASONE
     Route: 065
     Dates: start: 20160419, end: 20160419
  63. RANITIDINE. [Concomitant]
     Active Substance: RANITIDINE
     Route: 065
     Dates: start: 20151104, end: 20151104
  64. TRIMETON (ITALY) [Concomitant]
     Route: 065
     Dates: start: 20151202, end: 20151202
  65. TRIMETON (ITALY) [Concomitant]
     Route: 065
     Dates: start: 20151007, end: 20151007
  66. TRIMETON (ITALY) [Concomitant]
     Route: 065
     Dates: start: 20151216, end: 20151216
  67. TRIMETON (ITALY) [Concomitant]
     Route: 065
     Dates: start: 20160530, end: 20160530
  68. ZOFRAN [Concomitant]
     Active Substance: ONDANSETRON HYDROCHLORIDE
     Route: 065
     Dates: start: 20150904, end: 20150904
  69. VEMURAFENIB [Suspect]
     Active Substance: VEMURAFENIB
     Indication: COLORECTAL CANCER METASTATIC
     Dosage: DATE OF MOST RECENT DOSE OF STUDY DRUG PRIOR TO AE ONSET: 04/JUL/2016
     Route: 048
     Dates: start: 20160108
  70. DEURSIL [Concomitant]
     Active Substance: URSODIOL
     Route: 065
     Dates: start: 20150923, end: 20151118
  71. DEXAMETHASONE. [Concomitant]
     Active Substance: DEXAMETHASONE
     Route: 065
     Dates: start: 20160502, end: 20160502
  72. DEXAMETHASONE. [Concomitant]
     Active Substance: DEXAMETHASONE
     Route: 065
     Dates: start: 20160107, end: 20160107
  73. PLASIL [Concomitant]
     Active Substance: METOCLOPRAMIDE HYDROCHLORIDE
     Route: 065
     Dates: start: 20160530, end: 20160530
  74. ZOFRAN [Concomitant]
     Active Substance: ONDANSETRON HYDROCHLORIDE
     Route: 065
     Dates: start: 20151202, end: 20151202
  75. ZOFRAN [Concomitant]
     Active Substance: ONDANSETRON HYDROCHLORIDE
     Route: 065
     Dates: start: 20151118, end: 20151118

REACTIONS (1)
  - Myocardial ischaemia [Recovered/Resolved with Sequelae]

NARRATIVE: CASE EVENT DATE: 20160704
